FAERS Safety Report 9028794 (Version 1)
Quarter: 2013Q1

REPORT INFORMATION
  Report Type: Spontaneous
  Country: US (occurrence: US)
  Receive Date: 20130124
  Receipt Date: 20130124
  Transmission Date: 20140127
  Serious: No
  Sender: FDA-Public Use
  Company Number: US-BAUSCH-2012BL002187

PATIENT
  Sex: Female

DRUGS (2)
  1. ALAWAY [Suspect]
     Indication: EYE PRURITUS
     Route: 047
  2. ALAWAY [Suspect]
     Indication: EYE IRRITATION

REACTIONS (1)
  - Instillation site pain [Recovered/Resolved]
